FAERS Safety Report 9577711 (Version 1)
Quarter: 2013Q4

REPORT INFORMATION
  Report Type: Spontaneous
  Country: US (occurrence: US)
  Receive Date: 20131001
  Receipt Date: 20131001
  Transmission Date: 20140711
  Serious: No
  Sender: FDA-Public Use
  Company Number: US-AMGEN-USASP2013009026

PATIENT
  Age: 52 Year
  Sex: Female
  Weight: 190.48 kg

DRUGS (11)
  1. ENBREL [Suspect]
     Indication: PRODUCT USED FOR UNKNOWN INDICATION
     Dosage: 50 MG/ML, QWK
     Route: 058
  2. METHOTREXATE [Concomitant]
     Dosage: UNK
  3. COREG [Concomitant]
     Dosage: 3.125 MG, UNK
  4. LASIX                              /00032601/ [Concomitant]
     Dosage: 40 MG, UNK
  5. FOLIC ACID [Concomitant]
     Dosage: 1 MG, UNK
  6. SULINDAC [Concomitant]
     Dosage: 150 MG, UNK
  7. VITAMIN D                          /00107901/ [Concomitant]
     Dosage: 400 UNIT, UNK
  8. FISH OIL [Concomitant]
     Dosage: UNK
  9. BENICAR [Concomitant]
     Dosage: 5 MG, UNK
  10. MULTIVITAMINS, PLAIN [Concomitant]
     Dosage: UNK
  11. HYDROCODONE/HOMATROP [Concomitant]
     Dosage: UNK

REACTIONS (3)
  - Joint swelling [Unknown]
  - Bronchitis [Unknown]
  - Upper respiratory tract infection [Unknown]
